FAERS Safety Report 7968995-7 (Version None)
Quarter: 2011Q4

REPORT INFORMATION
  Report Type: 
  Country: None (occurrence: None)
  Receive Date: 20111209
  Receipt Date: 20111204
  Transmission Date: 20120403
  Serious: Yes (Hospitalization, Other)
  Sender: FDA-Public Use
  Company Number: US-AMGEN-USASP2011064294

PATIENT
  Age: 67 Year
  Sex: Male

DRUGS (1)
  1. ENBREL [Suspect]
     Indication: RHEUMATOID ARTHRITIS
     Dosage: 50 MG, QWK
     Dates: start: 19980201, end: 20111111

REACTIONS (6)
  - RHEUMATOID LUNG [None]
  - MENISCUS LESION [None]
  - HERPES ZOSTER [None]
  - DYSPNOEA [None]
  - COUGH [None]
  - PLEURAL EFFUSION [None]
